FAERS Safety Report 4690150-7 (Version None)
Quarter: 2005Q2

REPORT INFORMATION
  Report Type: 
  Country: None (occurrence: None)
  Receive Date: 20050613
  Receipt Date: 20050602
  Transmission Date: 20051028
  Serious: Yes (Hospitalization, Other)
  Sender: FDA-Public Use
  Company Number: 2005-05-1602

PATIENT
  Age: 42 Year
  Sex: Female
  Weight: 56 kg

DRUGS (6)
  1. REBETOL [Suspect]
     Indication: HEPATITIS C
     Dosage: 600 MG ORAL
     Route: 048
     Dates: start: 20040529, end: 20041120
  2. INTRON A [Suspect]
     Indication: HEPATITIS C
     Dosage: SEE IMAGE
     Route: 030
     Dates: start: 20040529, end: 20041101
  3. INTRON A [Suspect]
     Indication: HEPATITIS C
     Dosage: SEE IMAGE
     Route: 030
     Dates: start: 20040529, end: 20041118
  4. INTRON A [Suspect]
     Indication: HEPATITIS C
     Dosage: SEE IMAGE
     Route: 030
     Dates: start: 20041116, end: 20041118
  5. PRAVASTATIN SODIUM TABLETS [Concomitant]
  6. URSO TABELTS [Concomitant]

REACTIONS (13)
  - ANOREXIA [None]
  - AUTOIMMUNE DISORDER [None]
  - BASEDOW'S DISEASE [None]
  - DRY MOUTH [None]
  - DYSAESTHESIA [None]
  - DYSGEUSIA [None]
  - FEELING COLD [None]
  - HYPERTHYROIDISM [None]
  - HYPOTHYROIDISM [None]
  - LYMPHOCYTIC INFILTRATION [None]
  - MALAISE [None]
  - NEUROPATHY PERIPHERAL [None]
  - SJOGREN'S SYNDROME [None]
